FAERS Safety Report 7549808-4 (Version None)
Quarter: 2011Q2

REPORT INFORMATION
  Report Type: 
  Country: None (occurrence: None)
  Receive Date: 20110615
  Receipt Date: 20110608
  Transmission Date: 20111010
  Serious: Yes (Hospitalization)
  Sender: FDA-Public Use
  Company Number: CH-NAPPMUNDI-DEU-2011-0007434

PATIENT
  Age: 80 Year
  Sex: Male

DRUGS (9)
  1. MORPHINE [Suspect]
     Indication: BACK PAIN
     Dosage: 5 MG, TID
     Route: 058
     Dates: start: 20110516, end: 20110517
  2. MORPHINE SULFATE [Suspect]
     Dosage: 20 MG, BID
     Route: 048
     Dates: start: 20110520, end: 20110521
  3. ACETAMINOPHEN [Concomitant]
     Dosage: 1 G, QID
     Route: 048
  4. NORADRENALIN                       /00127501/ [Concomitant]
     Dosage: 50 MCG, Q1H
     Route: 042
  5. MORPHINE SULFATE [Suspect]
     Dosage: 20 MG, TID
     Route: 048
     Dates: start: 20110521, end: 20110523
  6. MORPHINE SULFATE [Suspect]
     Indication: BACK PAIN
     Dosage: 10 MG, Q4H
     Dates: start: 20110519, end: 20110519
  7. MORPHINE SULFATE [Suspect]
     Dosage: 10 MG, QID
     Route: 048
     Dates: start: 20110518, end: 20110518
  8. ASPIRIN [Concomitant]
     Dosage: 100 MG, DAILY
     Route: 048
  9. SIMVASTATIN [Concomitant]
     Dosage: 40 MG, DAILY
     Route: 048

REACTIONS (1)
  - ALTERED STATE OF CONSCIOUSNESS [None]
